FAERS Safety Report 26021420 (Version 1)
Quarter: 2025Q4

REPORT INFORMATION
  Report Type: Spontaneous
  Country: US (occurrence: US)
  Receive Date: 20251110
  Receipt Date: 20251110
  Transmission Date: 20260117
  Serious: Yes (Hospitalization, Other)
  Sender: CHATTEM
  Company Number: US-OPELLA-2025OHG031817

PATIENT
  Age: 36 Year
  Sex: Male

DRUGS (3)
  1. DIPHENHYDRAMINE [Suspect]
     Active Substance: DIPHENHYDRAMINE
     Indication: Tremor
     Dosage: 10-100 TABS OF DPH PER DAY
  2. DIPHENHYDRAMINE [Suspect]
     Active Substance: DIPHENHYDRAMINE
     Dosage: DPH 50 MG ORALLY ON DAY NINE AFTER ADMISSION
     Route: 048
  3. FLUPHENAZINE [Concomitant]
     Active Substance: FLUPHENAZINE
     Indication: Product used for unknown indication

REACTIONS (3)
  - Cholinergic rebound syndrome [Recovered/Resolved]
  - Drug abuse [Unknown]
  - Intentional overdose [Unknown]
